FAERS Safety Report 9161435 (Version 6)
Quarter: 2014Q1

REPORT INFORMATION
  Report Type: Spontaneous
  Country: US (occurrence: US)
  Receive Date: 20130313
  Receipt Date: 20140124
  Transmission Date: 20141002
  Serious: No
  Sender: FDA-Public Use
  Company Number: US-009507513-1303USA005332

PATIENT
  Age: 64 Year
  Sex: Male

DRUGS (8)
  1. PEGINTRON [Suspect]
     Indication: HEPATITIS C
     Dosage: REDIPEN, DOSE: 0.3 CC QW
     Route: 058
     Dates: start: 20130224, end: 20131220
  2. REBETOL [Suspect]
     Indication: HEPATITIS C
     Dosage: DOSE: 3 AM AND PM, BID
     Route: 048
     Dates: start: 20130224, end: 20131220
  3. TELAPREVIR [Suspect]
     Indication: HEPATITIS C
     Dosage: UNK
     Dates: start: 20130306, end: 20130529
  4. TELAPREVIR [Suspect]
     Dosage: UNK
     Dates: start: 2013
  5. TELAPREVIR [Suspect]
     Dosage: STRENGTH : 200 MG Q8H
     Route: 048
     Dates: start: 20130306, end: 20130406
  6. DULCOLAX [Concomitant]
  7. INSULIN GLARGINE [Concomitant]
     Dosage: STRENGTH: 100 U/CC, DOSE: 25 U Q PM
  8. ALLOPURINOL [Concomitant]

REACTIONS (11)
  - Platelet count decreased [Unknown]
  - Drug dose omission [Unknown]
  - Pruritus [Unknown]
  - Constipation [Unknown]
  - Incorrect dose administered [Unknown]
  - Haematochezia [Unknown]
  - Constipation [Unknown]
  - Pruritus generalised [Unknown]
  - Frustration [Unknown]
  - Blood pressure decreased [Unknown]
  - White blood cell count decreased [Unknown]
